FAERS Safety Report 9376913 (Version 1)
Quarter: 2013Q3

REPORT INFORMATION
  Report Type: Spontaneous
  Country: US (occurrence: US)
  Receive Date: 20130701
  Receipt Date: 20130701
  Transmission Date: 20140515
  Serious: Yes (Hospitalization)
  Sender: FDA-Public Use
  Company Number: US-BAYER-2013-080038

PATIENT
  Age: 26 Year
  Sex: Female
  Weight: 70.3 kg

DRUGS (4)
  1. YASMIN [Suspect]
  2. EXCEDRIN [ACETYLSALICYLIC ACID,CAFFEINE,PARACETAMOL] [Concomitant]
     Dosage: UNK,AS NEEDED
  3. XANAX [Concomitant]
     Indication: ANXIETY
  4. LORTAB [Concomitant]

REACTIONS (1)
  - Deep vein thrombosis [None]
